FAERS Safety Report 14153665 (Version 8)
Quarter: 2019Q4

REPORT INFORMATION
  Report Type: Spontaneous
  Country: US (occurrence: US)
  Receive Date: 20171102
  Receipt Date: 20191120
  Transmission Date: 20200122
  Serious: No
  Sender: FDA-Public Use
  Company Number: US-SA-2017SA180439

PATIENT
  Age: 74 Year
  Sex: Male
  Weight: 81.64 kg

DRUGS (2)
  1. PRALUENT [Suspect]
     Active Substance: ALIROCUMAB
     Indication: TYPE IIA HYPERLIPIDAEMIA
     Dosage: 75 MG,QOW
     Route: 058
     Dates: start: 201701
  2. PRALUENT [Suspect]
     Active Substance: ALIROCUMAB
     Indication: HYPERLIPIDAEMIA

REACTIONS (16)
  - Vertigo [Unknown]
  - Fall [Unknown]
  - Presyncope [Unknown]
  - Heart rate decreased [Unknown]
  - Limb injury [Not Recovered/Not Resolved]
  - Pain [Unknown]
  - Back disorder [Unknown]
  - Weight decreased [Unknown]
  - Thyroid mass [Unknown]
  - Limb injury [Unknown]
  - Asthenia [Unknown]
  - Dizziness [Unknown]
  - Pain in extremity [Unknown]
  - Pain [Not Recovered/Not Resolved]
  - Burning sensation [Unknown]
  - Balance disorder [Not Recovered/Not Resolved]

NARRATIVE: CASE EVENT DATE: 2017
